FAERS Safety Report 4816076-3 (Version None)
Quarter: 2005Q4

REPORT INFORMATION
  Report Type: 
  Country: None (occurrence: None)
  Receive Date: 20051027
  Receipt Date: 20051014
  Transmission Date: 20060501
  Serious: Yes (Other)
  Sender: FDA-Public Use
  Company Number: 200514156BCC

PATIENT
  Age: 52 Year
  Sex: Female
  Weight: 81.6475 kg

DRUGS (1)
  1. ALKA SELTZER GOLD ANTACID [Suspect]
     Indication: DYSPEPSIA
     Dosage: 2000 MG, ONCE, ORAL
     Route: 048
     Dates: start: 20050101

REACTIONS (4)
  - COGNITIVE DISORDER [None]
  - DIZZINESS [None]
  - NAUSEA [None]
  - VOMITING [None]
